FAERS Safety Report 19446693 (Version 1)
Quarter: 2021Q2

REPORT INFORMATION
  Report Type: Report from Study
  Country: FR (occurrence: FR)
  Receive Date: 20210622
  Receipt Date: 20210622
  Transmission Date: 20210717
  Serious: Yes (Hospitalization)
  Sender: FDA-Public Use
  Company Number: NVSC2020FR223342

PATIENT
  Sex: Female
  Weight: 40 kg

DRUGS (1)
  1. BYL719 [Suspect]
     Active Substance: ALPELISIB
     Indication: PIK3CA RELATED OVERGROWTH SPECTRUM
     Dosage: 50 MG, QD
     Route: 065
     Dates: start: 20170210

REACTIONS (4)
  - Nausea [Unknown]
  - Pain [Unknown]
  - Pyrexia [Unknown]
  - Vomiting [Unknown]
